FAERS Safety Report 9717511 (Version 2)
Quarter: 2013Q4

REPORT INFORMATION
  Report Type: Spontaneous
  Country: US (occurrence: US)
  Receive Date: 20131127
  Receipt Date: 20131127
  Transmission Date: 20140711
  Serious: No
  Sender: FDA-Public Use
  Company Number: US-GILEAD-2008-0019556

PATIENT
  Age: 83 Year
  Sex: Female

DRUGS (8)
  1. LETAIRIS [Suspect]
     Indication: PULMONARY ARTERIAL HYPERTENSION
     Route: 048
     Dates: start: 20081117, end: 20081217
  2. HYDROCHLOROTHIAZIDE [Concomitant]
     Route: 048
  3. DILTIAZEM [Concomitant]
     Route: 048
  4. LISINOPRIL [Concomitant]
     Route: 048
  5. TRICOR [Concomitant]
     Route: 048
  6. SIMVASTATIN [Concomitant]
     Route: 048
  7. LEVOTHYROXINE [Concomitant]
     Route: 048
  8. ASPIRIN [Concomitant]
     Route: 048

REACTIONS (1)
  - Nasal congestion [Unknown]
